FAERS Safety Report 19176069 (Version 2)
Quarter: 2021Q2

REPORT INFORMATION
  Report Type: Spontaneous
  Country: US (occurrence: US)
  Receive Date: 20210423
  Receipt Date: 20210429
  Transmission Date: 20210717
  Serious: Yes (Other)
  Sender: FDA-Public Use
  Company Number: US-TEVA-2021-US-1902679

PATIENT
  Age: 70 Year
  Sex: Female
  Weight: 73.94 kg

DRUGS (8)
  1. COPAXONE [Suspect]
     Active Substance: GLATIRAMER ACETATE
     Indication: MULTIPLE SCLEROSIS RELAPSE
     Dosage: 20 MILLIGRAM DAILY;
     Route: 065
     Dates: start: 2000
  2. ALBUTEROL SULFATE HFA [Concomitant]
     Active Substance: ALBUTEROL SULFATE
  3. COPAXONE [Suspect]
     Active Substance: GLATIRAMER ACETATE
     Route: 065
     Dates: start: 202103, end: 202103
  4. PROVIGIL [Concomitant]
     Active Substance: MODAFINIL
  5. PROZAC [Concomitant]
     Active Substance: FLUOXETINE HYDROCHLORIDE
  6. GABAPENTIN. [Concomitant]
     Active Substance: GABAPENTIN
  7. COPAXONE [Suspect]
     Active Substance: GLATIRAMER ACETATE
     Route: 065
  8. METFORMIN [Concomitant]
     Active Substance: METFORMIN HYDROCHLORIDE

REACTIONS (8)
  - Injection site reaction [Unknown]
  - Malabsorption from injection site [Unknown]
  - Chemical burn [Unknown]
  - Injection site erythema [Unknown]
  - Multiple sclerosis relapse [Unknown]
  - Wound [Unknown]
  - Injection site pruritus [Unknown]
  - Injection site scar [Unknown]

NARRATIVE: CASE EVENT DATE: 201908
